FAERS Safety Report 11907601 (Version 3)
Quarter: 2016Q1

REPORT INFORMATION
  Report Type: Report from Study
  Country: PL (occurrence: PL)
  Receive Date: 20160111
  Receipt Date: 20160127
  Transmission Date: 20160526
  Serious: Yes (Hospitalization)
  Sender: FDA-Public Use
  Company Number: PL-AMGEN-POLCT2016002018

PATIENT
  Age: 82 Year
  Sex: Male
  Weight: 72 kg

DRUGS (12)
  1. MAGNESIUM [Concomitant]
     Active Substance: MAGNESIUM
     Dosage: 48 MG, UNK
     Route: 048
     Dates: start: 2010
  2. VIVACE                             /00885601/ [Concomitant]
     Dosage: 5 MG, UNK
     Route: 048
     Dates: start: 1999
  3. CONCOR COR [Concomitant]
     Active Substance: BISOPROLOL FUMARATE
     Dosage: 5 MG, UNK
     Route: 048
     Dates: start: 1999
  4. VITAMIN B6 [Concomitant]
     Active Substance: PYRIDOXINE HYDROCHLORIDE
     Dosage: 5 MG, UNK
     Route: 048
     Dates: start: 2010
  5. AMG 145 [Suspect]
     Active Substance: EVOLOCUMAB
     Indication: ARTERIOSCLEROSIS CORONARY ARTERY
     Dosage: 420 MG, Q4WK
     Route: 058
     Dates: start: 20141216
  6. PREFILLED AUTOINJECTOR/PEN [Suspect]
     Active Substance: DEVICE
     Indication: DYSLIPIDAEMIA
     Dosage: UNK
     Route: 058
     Dates: start: 20141216
  7. ASPIRIN                            /00002701/ [Concomitant]
     Active Substance: ASPIRIN
     Dosage: 75 MG, UNK
     Route: 048
     Dates: start: 1996
  8. NORVASC [Concomitant]
     Active Substance: AMLODIPINE BESYLATE
     Dosage: 50 MG, UNK
     Route: 048
     Dates: start: 2006
  9. PREDUCTAL                          /00489601/ [Concomitant]
     Dosage: 35 MG, UNK
     Route: 048
     Dates: start: 2010
  10. KALIPOZ [Concomitant]
     Active Substance: POTASSIUM CHLORIDE
     Dosage: 391 MG, UNK
     Route: 048
     Dates: start: 2006
  11. ATORVASTATIN [Concomitant]
     Active Substance: ATORVASTATIN
     Indication: ARTERIOSCLEROSIS CORONARY ARTERY
     Dosage: UNK
     Dates: start: 20150826
  12. OPACORDEN [Concomitant]
     Dosage: 100 MG, UNK
     Route: 048
     Dates: start: 1999

REACTIONS (1)
  - Coronary artery disease [Recovered/Resolved]

NARRATIVE: CASE EVENT DATE: 20160104
